FAERS Safety Report 23577234 (Version 1)
Quarter: 2024Q1

REPORT INFORMATION
  Report Type: Spontaneous
  Country: JP (occurrence: JP)
  Receive Date: 20240228
  Receipt Date: 20240228
  Transmission Date: 20240410
  Serious: No
  Sender: FDA-Public Use
  Company Number: JP-MSD-2402JPN002467J

PATIENT
  Age: 31 Year
  Sex: Female
  Weight: 51 kg

DRUGS (4)
  1. LAGEVRIO [Suspect]
     Active Substance: MOLNUPIRAVIR
     Indication: COVID-19 treatment
     Dosage: 800 MILLIGRAM, BID
     Route: 048
     Dates: start: 20240209, end: 20240212
  2. TRANSAMIN [Concomitant]
     Active Substance: TRANEXAMIC ACID
     Dosage: 750 MILLIGRAM
     Route: 048
     Dates: start: 20240209, end: 20240212
  3. CALONAL [Concomitant]
     Active Substance: ACETAMINOPHEN
     Dosage: 6 DOSAGE FORM
     Route: 048
     Dates: start: 20240209, end: 20240212
  4. MONTELUKAST SODIUM [Concomitant]
     Active Substance: MONTELUKAST SODIUM
     Dosage: 10 MILLIGRAM
     Route: 048
     Dates: start: 20240209, end: 20240212

REACTIONS (3)
  - Maternal exposure during pregnancy [Unknown]
  - Product use issue [Unknown]
  - Underdose [Unknown]

NARRATIVE: CASE EVENT DATE: 20240212
